FAERS Safety Report 18048979 (Version 1)
Quarter: 2020Q3

REPORT INFORMATION
  Report Type: Spontaneous
  Country: US (occurrence: US)
  Receive Date: 20200721
  Receipt Date: 20200721
  Transmission Date: 20201103
  Serious: No
  Sender: FDA-Public Use
  Company Number: US-MYLANLABS-2020M1063748

PATIENT
  Sex: Female
  Weight: 85 kg

DRUGS (1)
  1. ESTRADIOL TRANSDERMAL SYSTEM [Suspect]
     Active Substance: ESTRADIOL
     Indication: MENOPAUSE
     Dosage: 0.05 MILLIGRAM, QD
     Route: 062

REACTIONS (2)
  - Application site pain [Unknown]
  - Product adhesion issue [Unknown]
